FAERS Safety Report 5153266-7 (Version None)
Quarter: 2006Q4

REPORT INFORMATION
  Report Type: 
  Country: None (occurrence: None)
  Receive Date: 20061117
  Receipt Date: 20061107
  Transmission Date: 20070319
  Serious: Yes (Hospitalization)
  Sender: FDA-Public Use
  Company Number: FR-ROCHE-470581

PATIENT
  Age: 64 Year
  Sex: Male

DRUGS (6)
  1. ROCEPHIN [Suspect]
     Indication: DRUG USE FOR UNKNOWN INDICATION
     Dosage: LATE OF LAST DOSE PRIOR TO EVENT 22 FEBRUARY 2006.
     Route: 065
     Dates: start: 20060217
  2. SOLU-MEDROL [Suspect]
     Indication: DRUG USE FOR UNKNOWN INDICATION
     Dosage: LATE OF LAST DOSE PRIOR TO EVENT 27 FEBRUARY 2006.
     Route: 065
     Dates: start: 20060227
  3. AUGMENTIN '125' [Suspect]
     Indication: DRUG USE FOR UNKNOWN INDICATION
     Dosage: LATE OF LAST DOSE PRIOR TO EVENT 27 FEBRUARY 2006.
     Route: 065
     Dates: start: 20060222
  4. MABTHERA [Concomitant]
     Indication: DRUG USE FOR UNKNOWN INDICATION
     Dates: start: 20060227, end: 20060227
  5. FLUDARABINE [Concomitant]
     Indication: DRUG USE FOR UNKNOWN INDICATION
  6. ENDOXAN [Concomitant]
     Indication: DRUG USE FOR UNKNOWN INDICATION
     Route: 048
     Dates: start: 20060227, end: 20060227

REACTIONS (4)
  - CROSS SENSITIVITY REACTION [None]
  - FACE OEDEMA [None]
  - OEDEMA [None]
  - RASH [None]
